FAERS Safety Report 21139472 (Version 2)
Quarter: 2022Q3

REPORT INFORMATION
  Report Type: Spontaneous
  Country: TH (occurrence: TH)
  Receive Date: 20220727
  Receipt Date: 20220808
  Transmission Date: 20221027
  Serious: Yes (Death, Hospitalization, Other)
  Sender: FDA-Public Use
  Company Number: TH-BoehringerIngelheim-2022-BI-183948

PATIENT
  Age: 89 Year
  Sex: Female

DRUGS (2)
  1. PRADAXA [Suspect]
     Active Substance: DABIGATRAN ETEXILATE MESYLATE
     Indication: Cerebrovascular accident prophylaxis
     Dosage: PRADAXA 150 MG 1 CAPSULE BID VIA ORAL
     Route: 048
     Dates: start: 20220628, end: 20220721
  2. PRADAXA [Suspect]
     Active Substance: DABIGATRAN ETEXILATE MESYLATE
     Indication: Atrial fibrillation

REACTIONS (7)
  - Gastrointestinal haemorrhage [Fatal]
  - Lower gastrointestinal haemorrhage [Recovered/Resolved]
  - Cardiac arrest [Unknown]
  - Thrombin time abnormal [Recovered/Resolved]
  - International normalised ratio abnormal [Recovered/Resolved]
  - Prothrombin time abnormal [Recovered/Resolved]
  - Activated partial thromboplastin time [Recovered/Resolved]

NARRATIVE: CASE EVENT DATE: 20220721
